FAERS Safety Report 21484618 (Version 1)
Quarter: 2022Q4

REPORT INFORMATION
  Report Type: Spontaneous
  Country: FR (occurrence: FR)
  Receive Date: 20221020
  Receipt Date: 20221020
  Transmission Date: 20230112
  Serious: Yes (Other)
  Sender: FDA-Public Use
  Company Number: None

PATIENT
  Age: 46 Year
  Sex: Male

DRUGS (2)
  1. VALPROATE SODIUM [Interacting]
     Active Substance: VALPROATE SODIUM
     Indication: Epilepsy
     Dosage: UNIT DOSE : 2500MG, FREQUENCY TIME : 1 DAY , THERAPY START DATE :  ASKU
     Route: 065
  2. MEROPENEM [Interacting]
     Active Substance: MEROPENEM
     Indication: Pneumonia
     Dosage: UNIT DOSE :   6 GRAM, FREQUENCY TIME : 1 DAY , DURATION : 7 DAYS
     Route: 065
     Dates: start: 20220818, end: 20220825

REACTIONS (3)
  - Seizure [Recovered/Resolved]
  - Drug interaction [Recovered/Resolved]
  - Anticonvulsant drug level decreased [Recovered/Resolved]

NARRATIVE: CASE EVENT DATE: 20220801
